FAERS Safety Report 17004003 (Version 3)
Quarter: 2019Q4

REPORT INFORMATION
  Report Type: Spontaneous
  Country: US (occurrence: US)
  Receive Date: 20191107
  Receipt Date: 20191202
  Transmission Date: 20200122
  Serious: Yes (Hospitalization, Other)
  Sender: FDA-Public Use
  Company Number: US-SA-2019SA303682

PATIENT
  Age: 35 Year
  Sex: Female
  Weight: 56 kg

DRUGS (8)
  1. BISACODYL. [Suspect]
     Active Substance: BISACODYL
     Dosage: REQUIRING ESCALATING DOSES
  2. BISACODYL. [Suspect]
     Active Substance: BISACODYL
  3. FUROSEMIDE. [Suspect]
     Active Substance: FUROSEMIDE
     Indication: OEDEMA PERIPHERAL
     Dosage: 10 MG
     Route: 048
  4. SENNA [Suspect]
     Active Substance: SENNA LEAF\SENNOSIDES\SENNOSIDES A AND B
  5. BISACODYL. [Suspect]
     Active Substance: BISACODYL
     Indication: ANOREXIA NERVOSA
     Dosage: 100 DF, QD (STRENGHT 5 MG)
  6. SENNA [Suspect]
     Active Substance: SENNA LEAF\SENNOSIDES\SENNOSIDES A AND B
     Dosage: REQUIRING ESCALATING DOSES
  7. FUROSEMIDE. [Suspect]
     Active Substance: FUROSEMIDE
     Indication: LOCALISED OEDEMA
     Dosage: DOSE WAS ADJUSTED SEVERAL TIMES
     Route: 048
  8. SENNA [Suspect]
     Active Substance: SENNA LEAF\SENNOSIDES\SENNOSIDES A AND B
     Indication: ANOREXIA NERVOSA
     Dosage: 100 DF, QD

REACTIONS (11)
  - Dyspnoea [Recovered/Resolved]
  - Asthenia [Recovered/Resolved]
  - Palpitations [Recovered/Resolved]
  - Constipation [Recovered/Resolved]
  - Drug abuse [Recovered/Resolved]
  - Electrolyte imbalance [Recovered/Resolved]
  - Weight increased [Recovered/Resolved]
  - Oedema peripheral [Recovered/Resolved]
  - Polyuria [Recovered/Resolved]
  - Blood creatinine increased [Recovered/Resolved]
  - Localised oedema [Recovered/Resolved]
